FAERS Safety Report 8031918-9 (Version None)
Quarter: 2012Q1

REPORT INFORMATION
  Report Type: 
  Country: None (occurrence: None)
  Receive Date: 20120109
  Receipt Date: 20111005
  Transmission Date: 20120608
  Serious: Yes (Hospitalization)
  Sender: FDA-Public Use
  Company Number: US-ABBOTT-11P-163-0861177-00

PATIENT
  Sex: Female
  Weight: 64.014 kg

DRUGS (10)
  1. IBUPROFEN [Concomitant]
     Indication: DENTAL DISCOMFORT
     Route: 048
     Dates: start: 20100830
  2. CYCLOBENZAPRINE HCL [Concomitant]
     Indication: BRUXISM
     Route: 048
     Dates: start: 20100219
  3. DR-103 [Suspect]
     Indication: ORAL CONTRACEPTION
     Dosage: 150/20 MCG FOR 42 DAYS
     Route: 048
     Dates: start: 20100207, end: 20101202
  4. DR-103 [Suspect]
     Dosage: 150/30 MCG FOR 21 DAYS
     Route: 048
     Dates: end: 20101202
  5. IBUPROFEN [Concomitant]
     Indication: MUSCULOSKELETAL CHEST PAIN
  6. VICODIN [Suspect]
     Indication: MUSCULOSKELETAL CHEST PAIN
  7. DR-103 [Suspect]
     Dosage: 150/25 MCG FOR 21 DAYS
     Route: 048
  8. VICODIN [Suspect]
     Indication: HEADACHE
     Route: 048
     Dates: start: 20100830, end: 20100902
  9. LORTAB [Concomitant]
  10. VICODIN [Suspect]
     Indication: NECK PAIN

REACTIONS (1)
  - DRUG DEPENDENCE [None]
